FAERS Safety Report 18991649 (Version 1)
Quarter: 2021Q1

REPORT INFORMATION
  Report Type: Spontaneous
  Country: ZA (occurrence: ZA)
  Receive Date: 20210310
  Receipt Date: 20210310
  Transmission Date: 20210420
  Serious: Yes (Other)
  Sender: FDA-Public Use
  Company Number: ZA-TEVA-2021-ZA-1888244

PATIENT

DRUGS (1)
  1. ASTOR ATORVASTATIN 10 MG [Suspect]
     Active Substance: ATORVASTATIN CALCIUM
     Route: 065

REACTIONS (4)
  - Psychotic symptom [Unknown]
  - Malaise [Unknown]
  - Tremor [Unknown]
  - Insomnia [Unknown]
